FAERS Safety Report 19925598 (Version 1)
Quarter: 2021Q4

REPORT INFORMATION
  Report Type: Spontaneous
  Country: US (occurrence: US)
  Receive Date: 20211006
  Receipt Date: 20211006
  Transmission Date: 20220303
  Serious: No
  Sender: FDA-Public Use
  Company Number: 2021A750094

PATIENT
  Age: 935 Month
  Sex: Female

DRUGS (8)
  1. BREZTRI [Suspect]
     Active Substance: BUDESONIDE\FORMOTEROL\GLYCOPYRROLATE
     Indication: Asthma
     Dosage: 2 PUFFS TWICE DAILY
     Route: 055
  2. BREZTRI [Suspect]
     Active Substance: BUDESONIDE\FORMOTEROL\GLYCOPYRROLATE
     Indication: Cor pulmonale
     Dosage: 2 PUFFS TWICE DAILY
     Route: 055
  3. BREZTRI [Suspect]
     Active Substance: BUDESONIDE\FORMOTEROL\GLYCOPYRROLATE
     Indication: Right ventricular failure
     Dosage: 2 PUFFS TWICE DAILY
     Route: 055
  4. BREZTRI [Suspect]
     Active Substance: BUDESONIDE\FORMOTEROL\GLYCOPYRROLATE
     Indication: Lung disorder
     Dosage: 2 PUFFS TWICE DAILY
     Route: 055
  5. BREZTRI [Suspect]
     Active Substance: BUDESONIDE\FORMOTEROL\GLYCOPYRROLATE
     Indication: Asthma
     Dosage: SOMETIMES ONLY TAKES BREZTRI ONCE PER DAY
     Route: 055
  6. BREZTRI [Suspect]
     Active Substance: BUDESONIDE\FORMOTEROL\GLYCOPYRROLATE
     Indication: Cor pulmonale
     Dosage: SOMETIMES ONLY TAKES BREZTRI ONCE PER DAY
     Route: 055
  7. BREZTRI [Suspect]
     Active Substance: BUDESONIDE\FORMOTEROL\GLYCOPYRROLATE
     Indication: Right ventricular failure
     Dosage: SOMETIMES ONLY TAKES BREZTRI ONCE PER DAY
     Route: 055
  8. BREZTRI [Suspect]
     Active Substance: BUDESONIDE\FORMOTEROL\GLYCOPYRROLATE
     Indication: Lung disorder
     Dosage: SOMETIMES ONLY TAKES BREZTRI ONCE PER DAY
     Route: 055

REACTIONS (5)
  - Body height decreased [Not Recovered/Not Resolved]
  - Off label use [Unknown]
  - Intentional device misuse [Unknown]
  - Device delivery system issue [Unknown]
  - Inability to afford medication [Unknown]

NARRATIVE: CASE EVENT DATE: 20210901
